FAERS Safety Report 22284145 (Version 30)
Quarter: 2024Q4

REPORT INFORMATION
  Report Type: Spontaneous
  Country: CA (occurrence: CA)
  Receive Date: 20230504
  Receipt Date: 20241104
  Transmission Date: 20250115
  Serious: Yes (Other)
  Sender: PFIZER
  Company Number: CA-PFIZER INC-PV202300064863

PATIENT
  Age: 22 Year
  Sex: Female
  Weight: 60 kg

DRUGS (30)
  1. ELELYSO [Suspect]
     Active Substance: TALIGLUCERASE ALFA
     Indication: Gaucher^s disease
     Dosage: UNK
     Route: 042
     Dates: start: 2019
  2. ELELYSO [Suspect]
     Active Substance: TALIGLUCERASE ALFA
     Dosage: 2400 UNK
     Route: 042
  3. ELELYSO [Suspect]
     Active Substance: TALIGLUCERASE ALFA
     Dosage: 1400 IU, EVERY TWO WEEKS
     Route: 042
     Dates: start: 20230427
  4. ELELYSO [Suspect]
     Active Substance: TALIGLUCERASE ALFA
     Dosage: UNK
     Route: 042
     Dates: start: 20230622
  5. ELELYSO [Suspect]
     Active Substance: TALIGLUCERASE ALFA
     Dosage: UNK
     Route: 042
  6. ELELYSO [Suspect]
     Active Substance: TALIGLUCERASE ALFA
     Dosage: 1600 IU, EVERY 2 WEEKS
     Route: 042
     Dates: start: 20230822
  7. ELELYSO [Suspect]
     Active Substance: TALIGLUCERASE ALFA
     Dosage: 1600 IU, EVERY 2 WEEKS
     Route: 042
     Dates: start: 20230904
  8. ELELYSO [Suspect]
     Active Substance: TALIGLUCERASE ALFA
     Dosage: 1600 IU, EVERY 2 WEEKS
     Route: 042
     Dates: start: 20230906
  9. ELELYSO [Suspect]
     Active Substance: TALIGLUCERASE ALFA
     Dosage: 1600 IU, EVERY 2 WEEKS
     Route: 042
     Dates: start: 20230919
  10. ELELYSO [Suspect]
     Active Substance: TALIGLUCERASE ALFA
     Dosage: 1600 IU, EVERY 2 WEEKS
     Route: 042
     Dates: start: 20231017
  11. ELELYSO [Suspect]
     Active Substance: TALIGLUCERASE ALFA
     Dosage: 1600 IU, EVERY 2 WEEKS
     Route: 042
     Dates: start: 20231114
  12. ELELYSO [Suspect]
     Active Substance: TALIGLUCERASE ALFA
     Dosage: 1600 IU, EVERY 2 WEEKS
     Route: 042
     Dates: start: 20231114
  13. ELELYSO [Suspect]
     Active Substance: TALIGLUCERASE ALFA
     Dosage: 1600 IU, EVERY 2 WEEKS
     Route: 042
     Dates: start: 20231114
  14. ELELYSO [Suspect]
     Active Substance: TALIGLUCERASE ALFA
     Dosage: 1600 IU, EVERY 2 WEEKS
     Route: 042
     Dates: start: 20231212
  15. ELELYSO [Suspect]
     Active Substance: TALIGLUCERASE ALFA
     Dosage: 1600 IU, EVERY 2 WEEKS
     Route: 042
     Dates: start: 20231227
  16. ELELYSO [Suspect]
     Active Substance: TALIGLUCERASE ALFA
     Dosage: 1600 IU, EVERY 2 WEEKS
     Route: 042
     Dates: start: 20240222
  17. ELELYSO [Suspect]
     Active Substance: TALIGLUCERASE ALFA
     Dosage: 1600 IU, EVERY 2 WEEKS
     Route: 042
     Dates: start: 20240307
  18. ELELYSO [Suspect]
     Active Substance: TALIGLUCERASE ALFA
     Dosage: 1600 IU, EVERY 2 WEEKS
     Route: 042
     Dates: start: 20240404
  19. ELELYSO [Suspect]
     Active Substance: TALIGLUCERASE ALFA
     Dosage: 1600 IU, EVERY 2 WEEKS
     Route: 042
     Dates: start: 20240418
  20. ELELYSO [Suspect]
     Active Substance: TALIGLUCERASE ALFA
     Dosage: 1600 IU,EVERY 2 WEEKS
     Route: 042
     Dates: start: 20240502
  21. ELELYSO [Suspect]
     Active Substance: TALIGLUCERASE ALFA
     Dosage: 1600 IU,EVERY 2 WEEKS
     Route: 042
     Dates: start: 20240516
  22. ELELYSO [Suspect]
     Active Substance: TALIGLUCERASE ALFA
     Dosage: 1600 IU, EVERY 2 WEEKS
     Route: 042
     Dates: start: 20240530
  23. ELELYSO [Suspect]
     Active Substance: TALIGLUCERASE ALFA
     Dosage: 1800 IU, EVERY 2 WEEKS
     Route: 042
     Dates: start: 20240613
  24. ELELYSO [Suspect]
     Active Substance: TALIGLUCERASE ALFA
     Dosage: 1800 IU, EVERY 2 WEEKS
     Route: 042
     Dates: start: 20240627
  25. ELELYSO [Suspect]
     Active Substance: TALIGLUCERASE ALFA
     Dosage: 1800 IU, EVERY 2 WEEKS
     Route: 042
     Dates: start: 20240715
  26. ELELYSO [Suspect]
     Active Substance: TALIGLUCERASE ALFA
     Dosage: 1800 IU, EVERY 2 WEEKS
     Route: 042
     Dates: start: 20240821
  27. ELELYSO [Suspect]
     Active Substance: TALIGLUCERASE ALFA
     Dosage: 1800 IU, EVERY 2 WEEKS
     Route: 042
     Dates: start: 20240821
  28. ELELYSO [Suspect]
     Active Substance: TALIGLUCERASE ALFA
     Dosage: 1800 IU, EVERY 2 WEEKS (SUPPOSED TO BE EVERY 2 WEEKS ? 2 DAYS, INFUSION#37)
     Route: 042
     Dates: start: 20241001
  29. ELELYSO [Suspect]
     Active Substance: TALIGLUCERASE ALFA
     Dosage: 1800 IU, EVERY 14 DAYS EVERY 2 WEEKS (SUPPOSED TO BE EVERY 2 WEEKS ? 2 DAYS, INFUSION#38)
     Route: 042
     Dates: start: 20241029
  30. CEREZYME [Concomitant]
     Active Substance: IMIGLUCERASE
     Dosage: UNK (AT HOSPITAL)
     Dates: start: 20241016

REACTIONS (16)
  - Bipolar disorder [Unknown]
  - Headache [Unknown]
  - Fatigue [Unknown]
  - Limb discomfort [Unknown]
  - Back pain [Unknown]
  - Peripheral swelling [Unknown]
  - Infusion site mass [Unknown]
  - Infusion site pain [Unknown]
  - Blood pressure diastolic decreased [Recovered/Resolved]
  - Heart rate increased [Recovered/Resolved]
  - Heart rate decreased [Unknown]
  - Body temperature increased [Unknown]
  - Blood pressure fluctuation [Unknown]
  - Off label use [Unknown]
  - Intentional dose omission [Unknown]
  - Inappropriate schedule of product administration [Unknown]

NARRATIVE: CASE EVENT DATE: 20190101
